FAERS Safety Report 16348807 (Version 1)
Quarter: 2019Q2

REPORT INFORMATION
  Report Type: Spontaneous
  Country: US (occurrence: US)
  Receive Date: 20190523
  Receipt Date: 20190523
  Transmission Date: 20190711
  Serious: Yes (Other)
  Sender: FDA-Public Use
  Company Number: US-TAKEDA-2019TUS001204

PATIENT

DRUGS (16)
  1. FLOMAX [Concomitant]
     Active Substance: TAMSULOSIN HYDROCHLORIDE
     Indication: URINARY RETENTION
     Dosage: UNK
     Dates: start: 200405, end: 200912
  2. PREVACID [Suspect]
     Active Substance: LANSOPRAZOLE
     Indication: GASTROOESOPHAGEAL REFLUX DISEASE
     Dosage: 30 MILLIGRAM
     Route: 048
     Dates: start: 2006, end: 2008
  3. LISINOPRIL. [Concomitant]
     Active Substance: LISINOPRIL
     Indication: BLOOD PRESSURE MEASUREMENT
     Dosage: UNK
     Dates: start: 200406, end: 201506
  4. TAMSULOSIN [Concomitant]
     Active Substance: TAMSULOSIN
     Indication: URINARY RETENTION
     Dosage: UNK
     Dates: start: 201004, end: 201005
  5. PREVACID 24 HR [Suspect]
     Active Substance: LANSOPRAZOLE
     Dosage: 15 MILLIGRAM
     Route: 048
     Dates: start: 2009, end: 2014
  6. CIALIS [Concomitant]
     Active Substance: TADALAFIL
     Indication: ERECTILE DYSFUNCTION
     Dosage: UNK
     Dates: start: 201109, end: 201110
  7. AVODART [Concomitant]
     Active Substance: DUTASTERIDE
     Indication: URINARY RETENTION
     Dosage: UNK
     Dates: start: 200805, end: 200806
  8. PANTOPRAZOLE [Suspect]
     Active Substance: PANTOPRAZOLE
     Indication: GASTROOESOPHAGEAL REFLUX DISEASE
     Dosage: UNK
     Route: 048
     Dates: start: 2015, end: 2015
  9. LOVASTATIN. [Concomitant]
     Active Substance: LOVASTATIN
     Indication: BLOOD CHOLESTEROL
     Dosage: UNK
     Dates: start: 200810, end: 201611
  10. ASPIRIN                            /00002701/ [Concomitant]
     Active Substance: ASPIRIN
     Indication: ANTICOAGULANT THERAPY
     Dosage: UNK
     Dates: start: 2015
  11. PREVACID 24 HR [Suspect]
     Active Substance: LANSOPRAZOLE
     Indication: GASTROOESOPHAGEAL REFLUX DISEASE
     Dosage: UNK
     Route: 048
     Dates: start: 2006, end: 2015
  12. ALLOPURINOL. [Concomitant]
     Active Substance: ALLOPURINOL
     Indication: GOUT
     Dosage: UNK
     Dates: start: 200409, end: 201609
  13. RANITIDINE. [Concomitant]
     Active Substance: RANITIDINE
     Dosage: UNK
     Dates: start: 2004, end: 2005
  14. FINASTERIDE. [Concomitant]
     Active Substance: FINASTERIDE
     Indication: URINARY RETENTION
     Dosage: UNK
     Dates: start: 200703, end: 200803
  15. CELEBREX [Concomitant]
     Active Substance: CELECOXIB
     Indication: INFLAMMATION
     Dosage: UNK
     Dates: start: 200804, end: 201005
  16. LIPITOR [Concomitant]
     Active Substance: ATORVASTATIN CALCIUM
     Indication: BLOOD CHOLESTEROL
     Dosage: UNK
     Dates: start: 200411, end: 200807

REACTIONS (1)
  - Chronic kidney disease [Not Recovered/Not Resolved]

NARRATIVE: CASE EVENT DATE: 2011
